FAERS Safety Report 6173292-9 (Version None)
Quarter: 2009Q2

REPORT INFORMATION
  Report Type: 
  Country: None (occurrence: None)
  Receive Date: 20090430
  Receipt Date: 20090421
  Transmission Date: 20091009
  Serious: Yes (Hospitalization)
  Sender: FDA-Public Use
  Company Number: FR-ELI_LILLY_AND_COMPANY-FR200904004807

PATIENT
  Age: 71 Year
  Sex: Female

DRUGS (2)
  1. FORTEO [Suspect]
     Indication: OSTEOPOROSIS
     Dosage: 20 UG, DAILY (1/D)
     Dates: start: 20080523, end: 20090309
  2. METHOTREXATE [Concomitant]
     Dates: end: 20090309

REACTIONS (3)
  - JOINT FLUID DRAINAGE [None]
  - LEUKOPENIA [None]
  - PYREXIA [None]
